FAERS Safety Report 7020957-2 (Version None)
Quarter: 2010Q3

REPORT INFORMATION
  Report Type: 
  Country: None (occurrence: None)
  Receive Date: 20100929
  Receipt Date: 20091104
  Transmission Date: 20110219
  Serious: No
  Sender: FDA-Public Use
  Company Number: A0815439A

PATIENT
  Age: 20 Year
  Sex: Male

DRUGS (1)
  1. RELENZA [Suspect]
     Indication: INFLUENZA
     Dosage: 10MG UNKNOWN
     Route: 055
     Dates: start: 20091104

REACTIONS (1)
  - COUGH [None]
